FAERS Safety Report 6831048-5 (Version None)
Quarter: 2010Q3

REPORT INFORMATION
  Report Type: 
  Country: None (occurrence: None)
  Receive Date: 20100712
  Receipt Date: 20100702
  Transmission Date: 20110219
  Serious: Yes (Other)
  Sender: FDA-Public Use
  Company Number: AU-ABBOTT-10P-008-0655592-00

PATIENT
  Age: 83 Year
  Sex: Female

DRUGS (2)
  1. EPILIM [Suspect]
     Indication: NEURALGIA
     Route: 065
  2. LYRICA [Concomitant]
     Indication: PRODUCT USED FOR UNKNOWN INDICATION

REACTIONS (4)
  - APHASIA [None]
  - CONVULSION [None]
  - DYSGRAPHIA [None]
  - OFF LABEL USE [None]
